FAERS Safety Report 17994788 (Version 1)
Quarter: 2020Q3

REPORT INFORMATION
  Report Type: Spontaneous
  Country: US (occurrence: US)
  Receive Date: 20200708
  Receipt Date: 20200708
  Transmission Date: 20201103
  Serious: Yes (Life-Threatening)
  Sender: FDA-Public Use
  Company Number: None

PATIENT
  Age: 69 Year
  Sex: Female
  Weight: 80.2 kg

DRUGS (1)
  1. REMDESIVIR. [Suspect]
     Active Substance: REMDESIVIR
     Indication: COVID-19 PNEUMONIA
     Route: 040
     Dates: start: 20200703, end: 20200704

REACTIONS (5)
  - Dyspnoea [None]
  - Tachycardia [None]
  - Disorientation [None]
  - Tachypnoea [None]
  - Angioedema [None]

NARRATIVE: CASE EVENT DATE: 20200704
